FAERS Safety Report 9973628 (Version 3)
Quarter: 2014Q2

REPORT INFORMATION
  Report Type: Spontaneous
  Country: GR (occurrence: GR)
  Receive Date: 20140306
  Receipt Date: 20140410
  Transmission Date: 20141212
  Serious: Yes (Other)
  Sender: FDA-Public Use
  Company Number: GR-ELI_LILLY_AND_COMPANY-GR201402007849

PATIENT
  Age: 53 Year
  Sex: Male

DRUGS (3)
  1. ALIMTA [Suspect]
     Indication: LUNG ADENOCARCINOMA METASTATIC
     Dosage: 500 MG/M2, UNKNOWN
     Route: 065
  2. CISPLATIN [Concomitant]
     Indication: LUNG ADENOCARCINOMA METASTATIC
     Dosage: UNK
     Route: 042
  3. AVASTIN [Concomitant]
     Indication: LUNG ADENOCARCINOMA METASTATIC
     Dosage: 15 MG/KG, CYCLICAL EVERY 3 WEEKS
     Route: 042

REACTIONS (3)
  - Blindness unilateral [Not Recovered/Not Resolved]
  - Ischaemic stroke [Unknown]
  - Off label use [Unknown]
